FAERS Safety Report 22176172 (Version 1)
Quarter: 2023Q2

REPORT INFORMATION
  Report Type: Other
  Country: DE (occurrence: DE)
  Receive Date: 20230405
  Receipt Date: 20230405
  Transmission Date: 20230722
  Serious: Yes (Other)
  Sender: FDA-Public Use
  Company Number: DE-PFIZER INC-202201345283

PATIENT
  Age: 44 Year
  Sex: Female

DRUGS (7)
  1. OCREVUS [Suspect]
     Active Substance: OCRELIZUMAB
     Indication: Progressive relapsing multiple sclerosis
     Dosage: SUBSEQUENT DOSE FREQUENCY: 600 MG 1 IN 174 DAYS, SUBSEQUENT DOSE FREQUENCY: 600 MG 1 IN 190 DAYS
     Route: 065
     Dates: start: 20181022
  2. OCREVUS [Suspect]
     Active Substance: OCRELIZUMAB
     Indication: Secondary progressive multiple sclerosis
  3. COMIRNATY [Suspect]
     Active Substance: TOZINAMERAN
     Indication: COVID-19 immunisation
     Dosage: DOSE 1, SINGLE
     Route: 065
     Dates: start: 20210401, end: 20210401
  4. COMIRNATY [Suspect]
     Active Substance: TOZINAMERAN
     Dosage: DOSE 2, SINGLE
     Route: 065
     Dates: start: 20210422, end: 20210422
  5. COMIRNATY [Suspect]
     Active Substance: TOZINAMERAN
     Dosage: DOSE 4 (BOOSTER), SINGLE
     Route: 065
  6. CANDESARTAN [Concomitant]
     Active Substance: CANDESARTAN
     Dosage: DOSE NUMBER: 4 MG, INTERVAL:0.25 DAY DAY
  7. CANDESARTAN [Concomitant]
     Active Substance: CANDESARTAN
     Dosage: 1X/DAY

REACTIONS (2)
  - Drug ineffective [Unknown]
  - Suspected COVID-19 [Recovered/Resolved]

NARRATIVE: CASE EVENT DATE: 20220913
